FAERS Safety Report 7934571-5 (Version None)
Quarter: 2011Q4

REPORT INFORMATION
  Report Type: 
  Country: None (occurrence: None)
  Receive Date: 20111122
  Receipt Date: 20111107
  Transmission Date: 20120403
  Serious: Yes (Hospitalization)
  Sender: FDA-Public Use
  Company Number: BE-WATSON-2011-19226

PATIENT
  Age: 14 Year
  Sex: Male

DRUGS (2)
  1. AZATHIOPRINE [Suspect]
     Indication: IMMUNOSUPPRESSION
     Dosage: UNK
  2. TACROLIMUS [Suspect]
     Indication: IMMUNOSUPPRESSION
     Dosage: UNK

REACTIONS (5)
  - LIVER SARCOIDOSIS [None]
  - BUDD-CHIARI SYNDROME [None]
  - HEPATIC CIRRHOSIS [None]
  - EXFOLIATIVE RASH [None]
  - DISEASE RECURRENCE [None]
